FAERS Safety Report 15458656 (Version 1)
Quarter: 2018Q4

REPORT INFORMATION
  Report Type: Report from Study
  Country: FI (occurrence: FI)
  Receive Date: 20181003
  Receipt Date: 20181003
  Transmission Date: 20190204
  Serious: Yes (Hospitalization)
  Sender: FDA-Public Use
  Company Number: FI-ASTELLAS-2018US041916

PATIENT
  Age: 75 Year
  Sex: Male
  Weight: 103 kg

DRUGS (5)
  1. ENZALUTAMIDE [Suspect]
     Active Substance: ENZALUTAMIDE
     Indication: HORMONE-DEPENDENT PROSTATE CANCER
     Dosage: UNK UNK, ONCE DAILY
     Route: 048
     Dates: start: 20161122
  2. ATACAND PLUS [Concomitant]
     Active Substance: CANDESARTAN CILEXETIL\HYDROCHLOROTHIAZIDE
     Indication: HYPERTENSION
     Dosage: 32/12.5 MG, ONCE DAILY
     Route: 048
     Dates: start: 20161028
  3. NORVASC [Concomitant]
     Active Substance: AMLODIPINE BESYLATE
     Indication: HYPERTENSION
     Route: 048
     Dates: start: 20180202
  4. LYRICA [Concomitant]
     Active Substance: PREGABALIN
     Indication: SPINAL CORD COMPRESSION
     Route: 048
     Dates: start: 20180829
  5. FIRMAGON [Concomitant]
     Active Substance: DEGARELIX ACETATE
     Indication: PROSTATE CANCER
     Route: 058
     Dates: start: 20161129

REACTIONS (1)
  - Pulmonary embolism [Not Recovered/Not Resolved]

NARRATIVE: CASE EVENT DATE: 20180921
